FAERS Safety Report 25205753 (Version 1)
Quarter: 2025Q2

REPORT INFORMATION
  Report Type: Spontaneous
  Country: NL (occurrence: NL)
  Receive Date: 20250417
  Receipt Date: 20250417
  Transmission Date: 20250717
  Serious: Yes (Hospitalization)
  Sender: CHEPLAPHARM
  Company Number: None

PATIENT
  Age: 23 Year
  Sex: Male

DRUGS (5)
  1. QUETIAPINE [Suspect]
     Active Substance: QUETIAPINE
  2. OXYCODONE [Suspect]
     Active Substance: OXYCODONE
  3. 3-METHYLMETHCATHINONE [Suspect]
     Active Substance: 3-METHYLMETHCATHINONE
  4. ALCOHOL [Suspect]
     Active Substance: ALCOHOL
  5. COCAINE [Suspect]
     Active Substance: COCAINE

REACTIONS (15)
  - Substance abuse [Unknown]
  - Food interaction [Unknown]
  - Drug interaction [Unknown]
  - Overdose [Unknown]
  - Coma [Unknown]
  - Shock [Unknown]
  - Cerebellar infarction [Unknown]
  - Toxic leukoencephalopathy [Unknown]
  - Acute kidney injury [Unknown]
  - Hyperkalaemia [Unknown]
  - Hypertransaminasaemia [Unknown]
  - Rhabdomyolysis [Unknown]
  - Hyperlactacidaemia [Unknown]
  - Hepatic failure [Unknown]
  - Hypotension [Unknown]
